FAERS Safety Report 9956586 (Version 1)
Quarter: 2014Q1

REPORT INFORMATION
  Report Type: Spontaneous
  Country: US (occurrence: US)
  Receive Date: 20140304
  Receipt Date: 20140304
  Transmission Date: 20141002
  Serious: No
  Sender: FDA-Public Use
  Company Number: US-ABBVIE-13P-163-1094756-00

PATIENT
  Age: 79 Year
  Sex: Female
  Weight: 69.92 kg

DRUGS (7)
  1. HUMIRA [Suspect]
     Indication: PSORIASIS
     Dates: start: 20130502
  2. PLAVIX [Concomitant]
     Indication: THROMBOSIS PROPHYLAXIS
  3. LIPITOR [Concomitant]
     Indication: BLOOD CHOLESTEROL INCREASED
  4. DILTIAZEM [Concomitant]
     Indication: HYPERTENSION
  5. LISINOPRIL [Concomitant]
     Indication: HYPERTENSION
  6. ISONIAZID [Concomitant]
     Indication: TUBERCULIN TEST POSITIVE
     Dates: start: 20130424, end: 20130523
  7. VITAMIN B 6 [Concomitant]
     Indication: VITAMIN SUPPLEMENTATION

REACTIONS (1)
  - Eye swelling [Not Recovered/Not Resolved]
